FAERS Safety Report 18432420 (Version 3)
Quarter: 2020Q4

REPORT INFORMATION
  Report Type: Report from Study
  Country: US (occurrence: US)
  Receive Date: 20201027
  Receipt Date: 20201117
  Transmission Date: 20210114
  Serious: Yes (Other)
  Sender: FDA-Public Use
  Company Number: US-JNJFOC-20201025357

PATIENT
  Age: 28 Year
  Sex: Male

DRUGS (6)
  1. TRAZODONE [Concomitant]
     Active Substance: TRAZODONE HYDROCHLORIDE
     Indication: INSOMNIA
     Dates: start: 20191206, end: 20200819
  2. BUPROPION. [Concomitant]
     Active Substance: BUPROPION
     Indication: MAJOR DEPRESSION
     Dates: start: 202005
  3. SPRAVATO [Suspect]
     Active Substance: ESKETAMINE
     Indication: DEPRESSION
     Dosage: 2 TOTAL DOSES
     Dates: start: 20200921, end: 20200923
  4. SPRAVATO [Suspect]
     Active Substance: ESKETAMINE
     Dosage: 5 TOTAL DOSES
     Dates: start: 20200928, end: 20201012
  5. VIIBRYD [Concomitant]
     Active Substance: VILAZODONE HYDROCHLORIDE
     Indication: MAJOR DEPRESSION
     Dates: start: 20200326
  6. SPRAVATO [Suspect]
     Active Substance: ESKETAMINE
     Dates: start: 20201014, end: 20201014

REACTIONS (3)
  - Sedation [Recovered/Resolved]
  - Depression [Unknown]
  - Suicidal ideation [Unknown]

NARRATIVE: CASE EVENT DATE: 20201012
